FAERS Safety Report 8433023-6 (Version None)
Quarter: 2012Q2

REPORT INFORMATION
  Report Type: 
  Country: None (occurrence: None)
  Receive Date: 20120613
  Receipt Date: 20120604
  Transmission Date: 20120825
  Serious: Yes (Life-Threatening, Disabling, Other)
  Sender: FDA-Public Use
  Company Number: AU-ROCHE-1075006

PATIENT
  Sex: Male
  Weight: 93 kg

DRUGS (6)
  1. GLICLAZIDE [Concomitant]
     Indication: DIABETES MELLITUS
     Route: 048
  2. XELODA [Suspect]
     Indication: COLON CANCER METASTATIC
     Route: 048
     Dates: start: 20120516, end: 20120527
  3. METFORMIN HCL [Concomitant]
     Indication: DIABETES MELLITUS
     Route: 048
  4. PANADOL OSTEO [Concomitant]
     Indication: PAIN
     Route: 048
  5. LIPITOR [Concomitant]
     Indication: HYPERCHOLESTEROLAEMIA
     Route: 048
  6. IRINOTECAN HCL [Concomitant]

REACTIONS (2)
  - CEREBRAL INFARCTION [None]
  - HEMIPLEGIA [None]
